FAERS Safety Report 21545244 (Version 1)
Quarter: 2022Q4

REPORT INFORMATION
  Report Type: Spontaneous
  Country: US (occurrence: US)
  Receive Date: 20221103
  Receipt Date: 20221103
  Transmission Date: 20230113
  Serious: No
  Sender: FDA-Public Use
  Company Number: US-BIOVITRUM-2022US08846

PATIENT
  Age: 5 Year
  Sex: Male

DRUGS (3)
  1. KINERET [Suspect]
     Active Substance: ANAKINRA
     Indication: Still^s disease
     Dates: start: 20220404
  2. KINERET [Suspect]
     Active Substance: ANAKINRA
     Dates: start: 20220404
  3. KINERET [Suspect]
     Active Substance: ANAKINRA
     Dates: start: 202203

REACTIONS (13)
  - Night sweats [Unknown]
  - Serum ferritin increased [Unknown]
  - Cough [Unknown]
  - Sneezing [Unknown]
  - Rhinorrhoea [Unknown]
  - Inflammatory marker increased [Recovering/Resolving]
  - Skin reaction [Unknown]
  - Blister [Unknown]
  - Pain [Unknown]
  - Skin irritation [Unknown]
  - Injection site vesicles [Recovered/Resolved]
  - Injection site pain [Recovered/Resolved]
  - Off label use [Not Recovered/Not Resolved]

NARRATIVE: CASE EVENT DATE: 20220404
